FAERS Safety Report 8759745 (Version 4)
Quarter: 2013Q4

REPORT INFORMATION
  Report Type: Spontaneous
  Country: JP (occurrence: JP)
  Receive Date: 20120829
  Receipt Date: 20131119
  Transmission Date: 20140711
  Serious: Yes (Other)
  Sender: FDA-Public Use
  Company Number: JP-VERTEX PHARMACEUTICAL INC.-2012-020186

PATIENT
  Age: 52 Year
  Sex: Female

DRUGS (21)
  1. TELAVIC [Suspect]
     Indication: HEPATITIS C
     Dosage: 1500 MG, UNK
     Route: 048
     Dates: start: 201201
  2. TELAVIC [Suspect]
     Indication: CHRONIC HEPATITIS C
     Dosage: UNK UNK, QD
     Route: 048
     Dates: start: 20120509, end: 20120711
  3. RIBAVIRIN [Suspect]
     Indication: HEPATITIS C
     Dosage: UNK
     Route: 048
     Dates: start: 201201
  4. RIBAVIRIN [Suspect]
     Dosage: 800 MG, QD
     Route: 048
     Dates: start: 20120509, end: 20120529
  5. RIBAVIRIN [Suspect]
     Dosage: 600 MG, QD
     Route: 048
     Dates: start: 20120530, end: 20120703
  6. RIBAVIRIN [Suspect]
     Dosage: 400 MG, QD
     Route: 048
     Dates: start: 20120704, end: 20120710
  7. PEGINTERFERON ALFA-2B [Suspect]
     Indication: HEPATITIS C
     Dosage: UNK
     Route: 058
     Dates: start: 201201
  8. PEGINTERFERON ALFA-2B [Suspect]
     Dosage: 1.2 ?G/KG, QW
     Route: 058
     Dates: start: 20120509
  9. PEGINTERFERON ALFA-2B [Suspect]
     Dosage: 1.26 ?G/KG, QW
     Route: 058
     Dates: end: 20120710
  10. NORVASC OD [Concomitant]
     Dosage: 10 MG, QD
     Route: 048
  11. MICARDIS [Concomitant]
     Dosage: 40 MG, QD
  12. BEZATOL [Concomitant]
     Dosage: 200 MG, QD
     Route: 048
  13. GLIMEPIRIDE [Concomitant]
     Dosage: 3 MG, QD
     Route: 048
  14. ACTOS [Concomitant]
     Dosage: 15 MG, QD
     Route: 048
  15. XYZAL [Concomitant]
     Dosage: 5 MG/DAY, PRN
     Route: 048
     Dates: start: 20120512, end: 20120514
  16. LOXONIN [Concomitant]
     Dosage: 60 MG/ DAY, PRN
     Route: 048
     Dates: start: 20120509, end: 20120518
  17. ALLELOCK [Concomitant]
     Dosage: 10 MG, QD
     Route: 048
     Dates: start: 20120514, end: 20120531
  18. CALONAL [Concomitant]
     Dosage: 400 MG/ DAY, QD
     Route: 048
     Dates: start: 20120518
  19. CALONAL [Concomitant]
     Dosage: 400 MG, QD
     Route: 048
     Dates: end: 20120522
  20. REFLEX [Concomitant]
     Dosage: 7.5 MG, QD
     Route: 048
     Dates: start: 20120613, end: 20120718
  21. SEIBULE [Concomitant]
     Dosage: 150 MG, QD
     Route: 048

REACTIONS (3)
  - Retinal haemorrhage [Recovered/Resolved]
  - Retinal exudates [Recovered/Resolved]
  - Retinopathy [Recovered/Resolved]
